FAERS Safety Report 10195571 (Version 1)
Quarter: 2014Q2

REPORT INFORMATION
  Report Type: Spontaneous
  Country: US (occurrence: US)
  Receive Date: 20140527
  Receipt Date: 20140527
  Transmission Date: 20141212
  Serious: Yes (Hospitalization)
  Sender: FDA-Public Use
  Company Number: PHHY2014US060837

PATIENT
  Age: 62 Year
  Sex: Male

DRUGS (5)
  1. AMIODARONE [Suspect]
     Indication: ATRIAL FIBRILLATION
     Dosage: 200 MG, BID
  2. ASPIRIN [Concomitant]
     Dosage: 325 MG, DAILY
  3. FUROSEMIDE [Concomitant]
     Dosage: 40 MG, BID
  4. LISINOPRIL [Concomitant]
     Dosage: 20 MG, DAILY
  5. METOPROLOL [Concomitant]
     Dosage: 50 MG, BID

REACTIONS (11)
  - Myxoedema coma [Recovered/Resolved]
  - Unresponsive to stimuli [Recovered/Resolved]
  - Mental status changes [Recovered/Resolved]
  - Eye swelling [Recovered/Resolved]
  - Hypotension [Recovered/Resolved]
  - Bradycardia [Recovered/Resolved]
  - Hypothermia [Recovered/Resolved]
  - Hypoglycaemia [Recovered/Resolved]
  - Lethargy [Recovered/Resolved]
  - Cold sweat [Recovered/Resolved]
  - Respiratory failure [Recovered/Resolved]
